FAERS Safety Report 10163249 (Version 9)
Quarter: 2015Q3

REPORT INFORMATION
  Report Type: Spontaneous
  Country: JP (occurrence: JP)
  Receive Date: 20140509
  Receipt Date: 20150909
  Transmission Date: 20151125
  Serious: Yes (Other)
  Sender: FDA-Public Use
  Company Number: JP-BRISTOL-MYERS SQUIBB COMPANY-20617411

PATIENT
  Age: 58 Year
  Sex: Male

DRUGS (4)
  1. ERBITUX [Suspect]
     Active Substance: CETUXIMAB
     Dosage: 250 MG/M2, QWK
     Route: 041
     Dates: start: 20140210, end: 20140310
  2. ERBITUX [Suspect]
     Active Substance: CETUXIMAB
     Indication: SQUAMOUS CELL CARCINOMA OF HEAD AND NECK
     Dosage: 10-FEB-14-31-MAR-14=(250MG/M2,L IN1 WK)(48D); RESUMED ON 31-MAR-2014;   7APR14-9JUN14,16JUN14-7JUL14
     Route: 041
     Dates: start: 20140203
  3. CARBOPLATIN. [Suspect]
     Active Substance: CARBOPLATIN
     Indication: SQUAMOUS CELL CARCINOMA OF HEAD AND NECK
     Dosage: 1DF:AUC 2.5 INCLUDING SKIPPED WEEK; THIRD CYCLE ON 17-MAR-2014
     Route: 041
     Dates: start: 20140203
  4. PACLITAXEL. [Suspect]
     Active Substance: PACLITAXEL
     Indication: SQUAMOUS CELL CARCINOMA OF HEAD AND NECK
     Dosage: THIRD CYCLE ON 17-MAR-2014.
     Route: 041
     Dates: start: 20140203, end: 20140602

REACTIONS (15)
  - Arthralgia [Unknown]
  - Upper respiratory tract infection [Unknown]
  - Hypomagnesaemia [Unknown]
  - Lung infection [Recovered/Resolved]
  - Hypokalaemia [Unknown]
  - Neutrophil count decreased [Unknown]
  - Alopecia [Unknown]
  - Haemoglobin decreased [Unknown]
  - Malaise [Unknown]
  - White blood cell count decreased [Unknown]
  - Peripheral sensory neuropathy [Unknown]
  - Skin reaction [Unknown]
  - Dermatitis acneiform [Unknown]
  - Hypoalbuminaemia [Unknown]
  - Dizziness [Unknown]

NARRATIVE: CASE EVENT DATE: 20140210
